FAERS Safety Report 8799312 (Version 1)
Quarter: 2012Q4

REPORT INFORMATION
  Report Type: Spontaneous
  Country: US (occurrence: None)
  Receive Date: 20120914
  Receipt Date: 20120914
  Transmission Date: 20130627
  Serious: Yes (Disabling, Other)
  Sender: FDA-Public Use
  Company Number: GB-DEXPHARM-20121219

PATIENT
  Age: 66 Year
  Sex: Female

DRUGS (6)
  1. OMEPRAZOLE [Suspect]
     Dates: start: 20120820
  2. AMOXICILLIN [Concomitant]
  3. CANDESARTAN [Concomitant]
  4. ERYTHROMYCIN [Concomitant]
  5. VENTOLIN [Concomitant]
  6. VOLUMATIC [Concomitant]

REACTIONS (3)
  - Blood pressure increased [None]
  - Dizziness [None]
  - Wheezing [None]
